FAERS Safety Report 6399553-6 (Version None)
Quarter: 2009Q4

REPORT INFORMATION
  Report Type: 
  Country: None (occurrence: None)
  Receive Date: 20091014
  Receipt Date: 20091006
  Transmission Date: 20100525
  Serious: Yes (Death)
  Sender: FDA-Public Use
  Company Number: US-ABBOTT-09P-163-0593859-00

PATIENT
  Sex: Female
  Weight: 88.893 kg

DRUGS (20)
  1. HUMIRA [Suspect]
     Indication: RHEUMATOID ARTHRITIS
     Route: 058
     Dates: start: 20090501, end: 20090801
  2. HUMIRA [Suspect]
  3. FOLIC ACID [Concomitant]
     Indication: DRUG USE FOR UNKNOWN INDICATION
     Dates: end: 20090801
  4. ALAVERT [Concomitant]
     Indication: DRUG USE FOR UNKNOWN INDICATION
     Dates: end: 20090801
  5. ESTROVEN [Concomitant]
     Indication: DRUG USE FOR UNKNOWN INDICATION
     Dates: end: 20090801
  6. TYLENOL (CAPLET) [Concomitant]
     Indication: DRUG USE FOR UNKNOWN INDICATION
     Dates: end: 20090801
  7. VITAMIN D [Concomitant]
     Indication: DRUG USE FOR UNKNOWN INDICATION
     Dates: end: 20090801
  8. MULTI-VITAMIN [Concomitant]
     Indication: DRUG USE FOR UNKNOWN INDICATION
     Dates: end: 20090801
  9. CALCIUM WITH MAGNESIUM, ZINC [Concomitant]
     Indication: DRUG USE FOR UNKNOWN INDICATION
  10. VITAMIN E [Concomitant]
     Indication: DRUG USE FOR UNKNOWN INDICATION
  11. NATURAL B [Concomitant]
     Indication: DRUG USE FOR UNKNOWN INDICATION
  12. OPTIVITE MVI [Concomitant]
     Indication: DRUG USE FOR UNKNOWN INDICATION
  13. CETIRIZINE HCL [Concomitant]
     Indication: DRUG USE FOR UNKNOWN INDICATION
  14. ARAVA [Concomitant]
     Indication: DRUG USE FOR UNKNOWN INDICATION
  15. METHOTREXATE SODIUM [Concomitant]
     Indication: DRUG USE FOR UNKNOWN INDICATION
     Route: 058
  16. PROPOXYPHENE HCL CAP [Concomitant]
     Indication: DRUG USE FOR UNKNOWN INDICATION
  17. PREDNISONE [Concomitant]
     Indication: DRUG USE FOR UNKNOWN INDICATION
  18. TRAMADOL HCL [Concomitant]
     Indication: DRUG USE FOR UNKNOWN INDICATION
  19. FLUOXETINE [Concomitant]
     Indication: DRUG USE FOR UNKNOWN INDICATION
  20. AMOXICILLIN [Concomitant]
     Indication: ACNE

REACTIONS (1)
  - COMPLETED SUICIDE [None]
